FAERS Safety Report 5183686-6 (Version None)
Quarter: 2006Q4

REPORT INFORMATION
  Report Type: 
  Country: None (occurrence: None)
  Receive Date: 20061220
  Receipt Date: 20060130
  Transmission Date: 20070319
  Serious: No
  Sender: FDA-Public Use
  Company Number: US-GLAXOSMITHKLINE-A0591412A

PATIENT
  Age: 30 Year
  Sex: Female

DRUGS (1)
  1. EQUATE NTS 21MG [Suspect]
     Dates: start: 20060125, end: 20060128

REACTIONS (3)
  - ABNORMAL DREAMS [None]
  - APPLICATION SITE PAIN [None]
  - INSOMNIA [None]
